FAERS Safety Report 7322499-3 (Version None)
Quarter: 2011Q1

REPORT INFORMATION
  Report Type: 
  Country: None (occurrence: None)
  Receive Date: 20110301
  Receipt Date: 20110105
  Transmission Date: 20110831
  Serious: Yes (Hospitalization)
  Sender: FDA-Public Use
  Company Number: US-BAYER-201010272NA

PATIENT
  Sex: Female
  Weight: 59 kg

DRUGS (7)
  1. ADVAIR DISKUS 100/50 [Concomitant]
     Dosage: UNK UNK, QD
     Route: 045
  2. ACIPHEX [Concomitant]
     Indication: ABDOMINAL PAIN UPPER
     Dosage: UNK
     Dates: start: 20070104
  3. YASMIN [Suspect]
     Indication: CONTRACEPTION
     Dosage: UNK
     Route: 048
     Dates: start: 20051201, end: 20060501
  4. ALBUTEROL [Concomitant]
     Dosage: UNK UNK, PRN
     Route: 045
  5. OCELLA [Suspect]
     Indication: CONTRACEPTION
     Dosage: UNK
     Route: 048
     Dates: start: 20080904, end: 20081201
  6. PROTON PUMP INHIBITORS [Concomitant]
     Dosage: UNK
     Dates: start: 20070603
  7. PROTONIX [Concomitant]
     Indication: ABDOMINAL PAIN
     Dosage: UNK
     Route: 042
     Dates: start: 20070603

REACTIONS (7)
  - ABDOMINAL PAIN [None]
  - CHOLELITHIASIS [None]
  - NAUSEA [None]
  - ABDOMINAL PAIN UPPER [None]
  - DIARRHOEA [None]
  - VOMITING [None]
  - HEART RATE IRREGULAR [None]
